FAERS Safety Report 8512818-4 (Version None)
Quarter: 2012Q3

REPORT INFORMATION
  Report Type: 
  Country: None (occurrence: None)
  Receive Date: 20120716
  Receipt Date: 20120705
  Transmission Date: 20120928
  Serious: Yes (Hospitalization)
  Sender: FDA-Public Use
  Company Number: US-ALEXION-A201201242

PATIENT
  Sex: Male

DRUGS (1)
  1. SOLIRIS [Suspect]
     Indication: PAROXYSMAL NOCTURNAL HAEMOGLOBINURIA
     Dosage: UNK
     Route: 042

REACTIONS (7)
  - EYE INFECTION FUNGAL [None]
  - TOOTHACHE [None]
  - SINUSITIS [None]
  - ZYGOMYCOSIS [None]
  - HEADACHE [None]
  - SWELLING FACE [None]
  - PLATELET COUNT ABNORMAL [None]
